FAERS Safety Report 13474413 (Version 2)
Quarter: 2017Q2

REPORT INFORMATION
  Report Type: Other
  Country: SE (occurrence: SE)
  Receive Date: 20170424
  Receipt Date: 20170512
  Transmission Date: 20170830
  Serious: Yes (Hospitalization)
  Sender: FDA-Public Use
  Company Number: SE-GE HEALTHCARE LIFE SCIENCES-2017CSU000979

PATIENT

DRUGS (9)
  1. METOPROLOL. [Concomitant]
     Active Substance: METOPROLOL
  2. MYOVIEW [Suspect]
     Active Substance: TECHNETIUM TC-99M TETROFOSMIN
     Indication: CORONARY ARTERY DISEASE
     Dosage: UNK UNK, SINGLE
     Route: 042
     Dates: start: 20170321, end: 20170321
  3. MIRTAZAPIN [Concomitant]
     Active Substance: MIRTAZAPINE
  4. CRESTOR [Concomitant]
     Active Substance: ROSUVASTATIN CALCIUM
  5. CANODERM [Concomitant]
  6. AMLODIPIN                          /00972401/ [Concomitant]
     Active Substance: AMLODIPINE BESYLATE
  7. TROMBYL [Concomitant]
     Active Substance: ASPIRIN
  8. BRICANYL [Concomitant]
     Active Substance: TERBUTALINE SULFATE
  9. FLUNITRAZEPAM [Concomitant]
     Active Substance: FLUNITRAZEPAM

REACTIONS (3)
  - Nausea [Recovered/Resolved]
  - Dizziness [Recovered/Resolved]
  - Vomiting [Recovered/Resolved]

NARRATIVE: CASE EVENT DATE: 20170322
